FAERS Safety Report 6156146-3 (Version None)
Quarter: 2009Q2

REPORT INFORMATION
  Report Type: 
  Country: None (occurrence: None)
  Receive Date: 20090415
  Receipt Date: 20090408
  Transmission Date: 20091009
  Serious: Yes (Other)
  Sender: FDA-Public Use
  Company Number: US-ALLERGAN-0904866US

PATIENT
  Sex: Female

DRUGS (5)
  1. BOTOX [Suspect]
     Indication: SKIN WRINKLING
     Dosage: 28 UNITS, SINGLE
     Route: 030
     Dates: start: 20081219, end: 20081219
  2. CEPHALEXIN [Concomitant]
     Indication: URINARY TRACT INFECTION
  3. CEPHALEXIN [Concomitant]
     Indication: VAGINAL INFECTION
  4. DOXYCYCLINE [Concomitant]
     Indication: URINARY TRACT INFECTION
  5. DOXYCYCLINE [Concomitant]
     Indication: VAGINAL INFECTION

REACTIONS (8)
  - ASTHENIA [None]
  - DIZZINESS [None]
  - DRY MOUTH [None]
  - HYPOAESTHESIA [None]
  - INJECTION SITE PAIN [None]
  - INJECTION SITE RASH [None]
  - MENTAL IMPAIRMENT [None]
  - TACHYCARDIA [None]
